FAERS Safety Report 7108906-X (Version None)
Quarter: 2010Q4

REPORT INFORMATION
  Report Type: 
  Country: None (occurrence: None)
  Receive Date: 20101112
  Receipt Date: 20101104
  Transmission Date: 20110411
  Serious: Yes (Hospitalization, Other)
  Sender: FDA-Public Use
  Company Number: 2010MA004306

PATIENT
  Age: 78 Year
  Sex: Male

DRUGS (13)
  1. SPIRONOLACTONE [Suspect]
     Indication: RIGHT VENTRICULAR FAILURE
     Dosage: 12.5 MG;QAM;PO
     Route: 048
     Dates: start: 20100908, end: 20101003
  2. FERROUS SULFATE [Concomitant]
  3. DIGOXIN [Concomitant]
  4. OMEPRAZOLE [Concomitant]
  5. SIMVASTATIN [Concomitant]
  6. WARFARIN SODIUM [Concomitant]
  7. FINASTERIDE [Concomitant]
  8. TIOTROPIUM BROMIDE [Concomitant]
  9. SERETIDE [Concomitant]
  10. BUMETANIDE [Concomitant]
  11. EPREX [Concomitant]
  12. METOLAZONE [Concomitant]
  13. CANDESARTAN [Concomitant]

REACTIONS (1)
  - RENAL FAILURE [None]
